FAERS Safety Report 14494794 (Version 1)
Quarter: 2018Q1

REPORT INFORMATION
  Report Type: Spontaneous
  Country: US (occurrence: US)
  Receive Date: 20180206
  Receipt Date: 20180206
  Transmission Date: 20180509
  Serious: Yes (Hospitalization, Other)
  Sender: FDA-Public Use
  Company Number: US-MYLANLABS-2018M1007306

PATIENT
  Age: 6 Decade
  Sex: Female

DRUGS (3)
  1. LISINOPRIL. [Suspect]
     Active Substance: LISINOPRIL
     Indication: PRODUCT USED FOR UNKNOWN INDICATION
     Dosage: UNK
     Route: 065
  2. AMITRIPTYLINE HYDROCHLORIDE. [Concomitant]
     Active Substance: AMITRIPTYLINE HYDROCHLORIDE
     Indication: PRODUCT USED FOR UNKNOWN INDICATION
     Dosage: UNK
     Route: 065
  3. INSULIN [Concomitant]
     Active Substance: INSULIN NOS
     Indication: PRODUCT USED FOR UNKNOWN INDICATION
     Dosage: UNK
     Route: 065

REACTIONS (9)
  - Respiratory distress [Unknown]
  - Ventricular tachycardia [Unknown]
  - Mental status changes [Unknown]
  - Electrocardiogram ST segment elevation [Recovered/Resolved]
  - Electrocardiogram Q waves [Unknown]
  - Hyperkalaemia [Unknown]
  - Bundle branch block right [Recovered/Resolved]
  - Electrocardiogram P wave abnormal [Unknown]
  - QRS axis abnormal [Unknown]
